FAERS Safety Report 15897063 (Version 2)
Quarter: 2023Q4

REPORT INFORMATION
  Report Type: Spontaneous
  Country: PL (occurrence: PL)
  Receive Date: 20190131
  Receipt Date: 20231005
  Transmission Date: 20240110
  Serious: Yes (Hospitalization)
  Sender: FDA-Public Use
  Company Number: PL-MYLANLABS-2019M1009035

PATIENT
  Age: 21 Year
  Sex: Female
  Weight: 43.7 kg

DRUGS (2)
  1. METFORMIN [Suspect]
     Active Substance: METFORMIN HYDROCHLORIDE
     Indication: Gene mutation
     Dosage: 1700 MILLIGRAM, QD (DAILY)
     Route: 065
  2. DUPHASTON [Concomitant]
     Active Substance: DYDROGESTERONE
     Indication: Amenorrhoea
     Dosage: UNK
     Route: 065

REACTIONS (4)
  - Glucose tolerance impaired [Unknown]
  - Paradoxical drug reaction [Unknown]
  - Condition aggravated [Unknown]
  - Insulin resistance [Unknown]
